FAERS Safety Report 8011217-1 (Version None)
Quarter: 2011Q4

REPORT INFORMATION
  Report Type: 
  Country: None (occurrence: None)
  Receive Date: 20111228
  Receipt Date: 20111220
  Transmission Date: 20120403
  Serious: Yes (Other)
  Sender: FDA-Public Use
  Company Number: US-JNJFOC-20111211315

PATIENT

DRUGS (15)
  1. CYCLOPHOSPHAMIDE [Suspect]
     Indication: B-CELL LYMPHOMA
     Route: 065
  2. PREDNISONE TAB [Suspect]
     Route: 065
  3. RITUXIMAB [Suspect]
     Route: 065
  4. LENALIDOMIDE [Suspect]
     Indication: B-CELL LYMPHOMA
     Route: 048
  5. PEGFILGRASTIM [Suspect]
     Route: 058
  6. PEGFILGRASTIM [Suspect]
     Indication: B-CELL LYMPHOMA
     Route: 058
  7. ASPIRIN [Concomitant]
     Indication: ANTICOAGULANT THERAPY
     Route: 058
  8. CYCLOPHOSPHAMIDE [Suspect]
     Route: 065
  9. DOXORUBICIN HCL [Suspect]
     Indication: B-CELL LYMPHOMA
     Route: 042
  10. DOXORUBICIN HCL [Suspect]
     Route: 042
  11. VINCRISTINE [Suspect]
     Indication: B-CELL LYMPHOMA
     Route: 065
  12. PREDNISONE TAB [Suspect]
     Indication: B-CELL LYMPHOMA
     Route: 065
  13. LENALIDOMIDE [Suspect]
     Route: 048
  14. RITUXIMAB [Suspect]
     Indication: B-CELL LYMPHOMA
     Route: 065
  15. VINCRISTINE [Suspect]
     Route: 065

REACTIONS (1)
  - SKIN INFECTION [None]
